FAERS Safety Report 20200351 (Version 1)
Quarter: 2021Q4

REPORT INFORMATION
  Report Type: Spontaneous
  Country: US (occurrence: US)
  Receive Date: 20211217
  Receipt Date: 20211217
  Transmission Date: 20220303
  Serious: Yes (Death, Hospitalization, Other)
  Sender: FDA-Public Use
  Company Number: US-APOTEX-2021AP046665

PATIENT
  Age: 64 Year
  Sex: Female

DRUGS (9)
  1. ATOVAQUONE [Suspect]
     Active Substance: ATOVAQUONE
     Indication: Antifungal prophylaxis
     Dosage: 1500 MILLIGRAM, QD
     Route: 065
     Dates: start: 201809
  2. ATOVAQUONE [Suspect]
     Active Substance: ATOVAQUONE
     Dosage: 750 MILLIGRAM, BID
     Route: 065
     Dates: start: 20190718, end: 20191013
  3. SIROLIMUS [Suspect]
     Active Substance: SIROLIMUS
     Indication: Product used for unknown indication
     Dosage: UNK
     Route: 065
  4. BLINATUMOMAB [Concomitant]
     Active Substance: BLINATUMOMAB
     Indication: Acute lymphocytic leukaemia
     Dosage: UNK
     Route: 065
     Dates: start: 20181212
  5. INOTUZUMAB OZOGAMICIN [Concomitant]
     Active Substance: INOTUZUMAB OZOGAMICIN
     Indication: Acute lymphocytic leukaemia
     Dosage: UNK
     Route: 065
     Dates: start: 20190409
  6. INOTUZUMAB OZOGAMICIN [Concomitant]
     Active Substance: INOTUZUMAB OZOGAMICIN
     Indication: Immunochemotherapy
  7. CYCLOPHOSPHAMIDE [Concomitant]
     Active Substance: CYCLOPHOSPHAMIDE
     Indication: Acute lymphocytic leukaemia
     Dosage: UNK
     Route: 065
     Dates: start: 20190409
  8. VINCRISTINE [Concomitant]
     Active Substance: VINCRISTINE
     Indication: Acute lymphocytic leukaemia
     Dosage: UNK
     Route: 065
     Dates: start: 20190409
  9. DEXAMETHASONE [Concomitant]
     Active Substance: DEXAMETHASONE
     Indication: Acute lymphocytic leukaemia
     Dosage: UNK
     Route: 065
     Dates: start: 20190409

REACTIONS (7)
  - Multiple organ dysfunction syndrome [Fatal]
  - Shock [Fatal]
  - Babesiosis [Recovering/Resolving]
  - Haemolysis [Recovering/Resolving]
  - Infection [Recovering/Resolving]
  - Drug level below therapeutic [Unknown]
  - Liver function test increased [Recovering/Resolving]
